FAERS Safety Report 9095697 (Version 1)
Quarter: 2013Q1

REPORT INFORMATION
  Report Type: Spontaneous
  Country: CN (occurrence: None)
  Receive Date: 20130124
  Receipt Date: 20130124
  Transmission Date: 20140127
  Serious: Yes (Other)
  Sender: FDA-Public Use
  Company Number: VAL_01290_2013

PATIENT
  Sex: Male
  Weight: 80 kg

DRUGS (1)
  1. BENAZEPRIL [Suspect]
     Indication: HYPERTENSION
     Route: 048
     Dates: end: 201101

REACTIONS (3)
  - Cough [None]
  - Blood pressure inadequately controlled [None]
  - Laryngeal oedema [None]
